FAERS Safety Report 6527428-8 (Version None)
Quarter: 2009Q4

REPORT INFORMATION
  Report Type: 
  Country: None (occurrence: None)
  Receive Date: 20091222
  Receipt Date: 20091029
  Transmission Date: 20100525
  Serious: No
  Sender: FDA-Public Use
  Company Number: ALL1-2009-02993

PATIENT
  Age: 62 Year
  Sex: Female
  Weight: 55.3 kg

DRUGS (3)
  1. VYVANSE [Suspect]
     Indication: ATTENTION DEFICIT/HYPERACTIVITY DISORDER
     Dosage: MG, 1X/DAY:QD, ORAL
     Route: 048
     Dates: start: 20070101, end: 20070101
  2. VYVANSE [Suspect]
     Indication: ATTENTION DEFICIT/HYPERACTIVITY DISORDER
     Dosage: MG, 1X/DAY:QD, ORAL
     Route: 048
     Dates: start: 20090501, end: 20090501
  3. TRAZODONE HCL [Concomitant]

REACTIONS (3)
  - CONDITION AGGRAVATED [None]
  - HYPOAESTHESIA [None]
  - MIGRAINE [None]
